FAERS Safety Report 14730565 (Version 3)
Quarter: 2018Q4

REPORT INFORMATION
  Report Type: Report from Study
  Country: CA (occurrence: CA)
  Receive Date: 20180406
  Receipt Date: 20181024
  Transmission Date: 20190204
  Serious: Yes (Other)
  Sender: FDA-Public Use
  Company Number: PHHY2016CA047062

PATIENT
  Age: 40 Year
  Sex: Male
  Weight: 67.12 kg

DRUGS (4)
  1. ADVIL [Concomitant]
     Active Substance: IBUPROFEN
     Indication: PRODUCT USED FOR UNKNOWN INDICATION
     Dosage: 2 DF, UNK
     Route: 065
  2. SANDOSTATIN LAR DEPOT [Suspect]
     Active Substance: OCTREOTIDE ACETATE
     Indication: CARCINOID TUMOUR
     Dosage: 30 MG, QMO
     Route: 030
     Dates: start: 20160311
  3. SANDOSTATIN [Suspect]
     Active Substance: OCTREOTIDE ACETATE
     Indication: CARCINOID TUMOUR
     Dosage: UNK MG, UNK
     Route: 058
     Dates: start: 20160301
  4. SANDOSTATIN LAR DEPOT [Suspect]
     Active Substance: OCTREOTIDE ACETATE
     Dosage: 60 MG, QMO
     Route: 030
     Dates: start: 20170517

REACTIONS (37)
  - Neoplasm progression [Unknown]
  - Blood pressure decreased [Recovered/Resolved]
  - Pain [Not Recovered/Not Resolved]
  - Heart rate decreased [Unknown]
  - Constipation [Unknown]
  - Productive cough [Unknown]
  - Hypotension [Unknown]
  - Cough [Unknown]
  - Heart rate decreased [Recovered/Resolved]
  - Loss of consciousness [Unknown]
  - Swollen tongue [Unknown]
  - Musculoskeletal pain [Unknown]
  - Syncope [Unknown]
  - Pallor [Unknown]
  - Insomnia [Unknown]
  - Oropharyngeal pain [Recovered/Resolved]
  - Anxiety [Unknown]
  - Coccydynia [Unknown]
  - Muscle spasms [Recovered/Resolved]
  - Drooling [Unknown]
  - Blood pressure diastolic decreased [Recovered/Resolved]
  - Respiratory rate decreased [Recovered/Resolved]
  - Somnolence [Unknown]
  - Weight decreased [Unknown]
  - Rhinorrhoea [Unknown]
  - Peripheral coldness [Unknown]
  - Blood pressure decreased [Unknown]
  - Asthenia [Unknown]
  - Nasopharyngitis [Recovering/Resolving]
  - Muscle strain [Unknown]
  - Groin pain [Unknown]
  - Headache [Unknown]
  - Dizziness [Recovered/Resolved]
  - Needle issue [Unknown]
  - Salivary hypersecretion [Unknown]
  - Heart rate decreased [Recovered/Resolved]
  - Hypoglycaemia [Unknown]

NARRATIVE: CASE EVENT DATE: 201604
